FAERS Safety Report 21465134 (Version 1)
Quarter: 2022Q4

REPORT INFORMATION
  Report Type: Spontaneous
  Country: CA (occurrence: CA)
  Receive Date: 20221017
  Receipt Date: 20221017
  Transmission Date: 20230113
  Serious: Yes (Other)
  Sender: FDA-Public Use
  Company Number: None

PATIENT
  Age: 49 Year
  Sex: Female

DRUGS (1)
  1. VICTOZA [Suspect]
     Active Substance: LIRAGLUTIDE
     Indication: Weight control
     Dosage: 1 MG, QW
     Route: 058

REACTIONS (5)
  - Food aversion [Unknown]
  - Food craving [Unknown]
  - Illness [Unknown]
  - Post-acute COVID-19 syndrome [Unknown]
  - Product use in unapproved indication [Unknown]
